FAERS Safety Report 6073738-0 (Version None)
Quarter: 2009Q1

REPORT INFORMATION
  Report Type: 
  Country: None (occurrence: None)
  Receive Date: 20090211
  Receipt Date: 20090204
  Transmission Date: 20090719
  Serious: Yes (Hospitalization)
  Sender: FDA-Public Use
  Company Number: US-GILEAD-2008-0018949

PATIENT
  Sex: Female
  Weight: 70.37 kg

DRUGS (10)
  1. LETAIRIS [Suspect]
     Indication: PULMONARY ARTERIAL HYPERTENSION
     Route: 048
     Dates: start: 20071211
  2. REVATIO [Concomitant]
  3. COUMADIN [Concomitant]
     Route: 048
  4. LISINOPRIL [Concomitant]
     Route: 048
  5. BUMEX [Concomitant]
     Route: 048
  6. ALBUTEROL [Concomitant]
     Route: 055
  7. SPIRIVA [Concomitant]
     Route: 055
  8. PREVACID [Concomitant]
     Route: 048
  9. FOLBIC [Concomitant]
     Route: 048
  10. POTASSIUM CHLORIDE [Concomitant]
     Route: 048

REACTIONS (3)
  - OEDEMA PERIPHERAL [None]
  - PLEURAL EFFUSION [None]
  - PNEUMONIA [None]
